FAERS Safety Report 5755771-9 (Version None)
Quarter: 2008Q2

REPORT INFORMATION
  Report Type: 
  Country: None (occurrence: None)
  Receive Date: 20080530
  Receipt Date: 20080530
  Transmission Date: 20081010
  Serious: Yes (Other)
  Sender: FDA-Public Use
  Company Number: None

PATIENT
  Age: 61 Year
  Sex: Female
  Weight: 107.0489 kg

DRUGS (2)
  1. ZOLPIDEM [Suspect]
     Indication: SLEEP DISORDER
     Dosage: ONCE QHS PRN PO
     Route: 048
     Dates: start: 20080101
  2. ZOLPIDEM [Suspect]
     Indication: SLEEP DISORDER
     Dosage: ONCE QHS PRN PO
     Route: 048
     Dates: start: 20080501

REACTIONS (3)
  - NAUSEA [None]
  - PALPITATIONS [None]
  - TREMOR [None]
